FAERS Safety Report 12867709 (Version 5)
Quarter: 2017Q1

REPORT INFORMATION
  Report Type: Spontaneous
  Country: DE (occurrence: DE)
  Receive Date: 20161020
  Receipt Date: 20170116
  Transmission Date: 20170428
  Serious: Yes (Hospitalization)
  Sender: FDA-Public Use
  Company Number: DE-DSJP-DSE-2016-135016

PATIENT

DRUGS (1)
  1. LIXIANA [Suspect]
     Active Substance: EDOXABAN TOSILATE MONOHYDRATE
     Indication: DEEP VEIN THROMBOSIS
     Dosage: 60 MG, QD
     Route: 048
     Dates: start: 201608, end: 201609

REACTIONS (1)
  - Hepatitis toxic [Recovering/Resolving]

NARRATIVE: CASE EVENT DATE: 20160922
